FAERS Safety Report 18293359 (Version 1)
Quarter: 2020Q3

REPORT INFORMATION
  Report Type: Other
  Country: US (occurrence: US)
  Receive Date: 20200921
  Receipt Date: 20200921
  Transmission Date: 20201103
  Serious: No
  Sender: FDA-Public Use
  Company Number: US-ACORDA-ACO_165401_2020

PATIENT
  Age: 87 Year
  Sex: Male

DRUGS (1)
  1. INBRIJA [Suspect]
     Active Substance: LEVODOPA
     Indication: PRODUCT USED FOR UNKNOWN INDICATION
     Dosage: 84 MILLIGRAM, AS NEEDED
     Route: 050

REACTIONS (2)
  - Sputum discoloured [Unknown]
  - Productive cough [Unknown]

NARRATIVE: CASE EVENT DATE: 20200610
